FAERS Safety Report 6870605-7 (Version None)
Quarter: 2010Q3

REPORT INFORMATION
  Report Type: 
  Country: None (occurrence: None)
  Receive Date: 20100723
  Receipt Date: 20100716
  Transmission Date: 20110219
  Serious: No
  Sender: FDA-Public Use
  Company Number: PHHY2010US42668

PATIENT
  Sex: Female

DRUGS (8)
  1. FORADIL [Suspect]
     Indication: LUNG DISORDER
     Dosage: 12 UG, BID
  2. FORADIL [Suspect]
     Indication: CHRONIC OBSTRUCTIVE PULMONARY DISEASE
  3. FORADIL [Suspect]
     Indication: ASTHMA
  4. OXYGEN [Concomitant]
  5. GLU NUNDE [Concomitant]
  6. FLUTICASONE PROPIONATE [Concomitant]
     Dosage: 110 UG, BID
  7. GLYBURIDE [Concomitant]
     Route: 048
  8. DIAMOX SRC [Concomitant]
     Dosage: 250 MG, BID
     Route: 048

REACTIONS (5)
  - CANDIDIASIS [None]
  - OEDEMA MOUTH [None]
  - PHARYNGEAL OEDEMA [None]
  - PRODUCT TASTE ABNORMAL [None]
  - RASH [None]
